FAERS Safety Report 10526331 (Version 1)
Quarter: 2014Q4

REPORT INFORMATION
  Report Type: Spontaneous
  Country: FR (occurrence: FR)
  Receive Date: 20141019
  Receipt Date: 20141019
  Transmission Date: 20150528
  Serious: Yes (Other)
  Sender: FDA-Public Use
  Company Number: PHHY2014FR133651

PATIENT
  Age: 17 Year
  Sex: Male

DRUGS (1)
  1. ZOLPIDEM [Suspect]
     Active Substance: ZOLPIDEM\ZOLPIDEM TARTRATE
     Indication: INSOMNIA
     Dosage: 20 MG, ONCE/SINGLE
     Route: 048
     Dates: start: 20140706

REACTIONS (4)
  - Medication error [Recovered/Resolved]
  - Hallucination [Recovered/Resolved]
  - Incorrect dose administered [Recovered/Resolved]
  - Amnesia [Recovered/Resolved]

NARRATIVE: CASE EVENT DATE: 20140707
